FAERS Safety Report 7736811-4 (Version None)
Quarter: 2011Q3

REPORT INFORMATION
  Report Type: 
  Country: None (occurrence: None)
  Receive Date: 20110908
  Receipt Date: 20110908
  Transmission Date: 20111222
  Serious: No
  Sender: FDA-Public Use
  Company Number: None

PATIENT
  Sex: Female

DRUGS (1)
  1. FORTEO [Suspect]
     Indication: OSTEOPOROSIS
     Dosage: 20MCG
     Route: 058
     Dates: start: 20110817, end: 20110907

REACTIONS (4)
  - MUSCULAR WEAKNESS [None]
  - NAUSEA [None]
  - HEADACHE [None]
  - ASTHENIA [None]
